FAERS Safety Report 4957207-4 (Version None)
Quarter: 2006Q1

REPORT INFORMATION
  Report Type: 
  Country: None (occurrence: None)
  Receive Date: 20060329
  Receipt Date: 20050208
  Transmission Date: 20060701
  Serious: Yes (Hospitalization, Disabling, Other)
  Sender: FDA-Public Use
  Company Number: US-MERCK-0502USA01106

PATIENT
  Age: 53 Year
  Sex: Female
  Weight: 101 kg

DRUGS (6)
  1. VIOXX [Suspect]
     Indication: ARTHRALGIA
     Route: 048
     Dates: start: 19990701, end: 20041001
  2. VIOXX [Suspect]
     Indication: PAIN IN EXTREMITY
     Route: 048
     Dates: start: 19990701, end: 20041001
  3. LOPRESSOR [Concomitant]
     Indication: MITRAL VALVE PROLAPSE
     Route: 065
  4. PREMARIN [Concomitant]
     Route: 065
  5. TOPROL-XL [Concomitant]
     Route: 065
  6. PHENTERMINE [Concomitant]
     Indication: WEIGHT CONTROL
     Route: 065

REACTIONS (18)
  - ANGIOPATHY [None]
  - APHASIA [None]
  - ASTHENIA [None]
  - CEREBROVASCULAR ACCIDENT [None]
  - CORONARY ARTERY DISEASE [None]
  - DEMYELINATION [None]
  - DIABETES MELLITUS [None]
  - DIPLOPIA [None]
  - DYSARTHRIA [None]
  - ERYTHEMA [None]
  - HIATUS HERNIA [None]
  - MITRAL VALVE INCOMPETENCE [None]
  - MITRAL VALVE STENOSIS [None]
  - MOVEMENT DISORDER [None]
  - PARAESTHESIA [None]
  - PARAPARESIS [None]
  - TRICUSPID VALVE INCOMPETENCE [None]
  - VERTIGO [None]
